FAERS Safety Report 25300602 (Version 1)
Quarter: 2025Q2

REPORT INFORMATION
  Report Type: Spontaneous
  Country: US (occurrence: None)
  Receive Date: 20250509
  Receipt Date: 20250509
  Transmission Date: 20250716
  Serious: No
  Sender: FDA-CTU
  Company Number: None

PATIENT
  Age: 63 Year
  Sex: Male
  Weight: 86.04 kg

DRUGS (2)
  1. CABOMETYX [Suspect]
     Active Substance: CABOZANTINIB S-MALATE
     Indication: Renal cancer
     Dosage: 40 MG DAILY ORAL ?
     Route: 048
     Dates: start: 20250310
  2. vitamin d3 1.25mg [Concomitant]
     Dates: start: 20250310

REACTIONS (3)
  - Blister [None]
  - Hyperthyroidism [None]
  - Fatigue [None]

NARRATIVE: CASE EVENT DATE: 20250509
